FAERS Safety Report 5167869-7 (Version None)
Quarter: 2006Q4

REPORT INFORMATION
  Report Type: 
  Country: None (occurrence: None)
  Receive Date: 20061206
  Receipt Date: 20061206
  Transmission Date: 20070319
  Serious: Yes (Hospitalization)
  Sender: FDA-Public Use
  Company Number: None

PATIENT
  Age: 56 Year
  Sex: Male
  Weight: 118.8424 kg

DRUGS (1)
  1. TESTOSTERONE [Suspect]
     Indication: ANDROGEN DEFICIENCY
     Dosage: 25 MG Q24H
     Dates: start: 20050614, end: 20060811

REACTIONS (1)
  - MYALGIA [None]
